FAERS Safety Report 15030778 (Version 1)
Quarter: 2018Q2

REPORT INFORMATION
  Report Type: Spontaneous
  Country: US (occurrence: US)
  Receive Date: 20180529
  Receipt Date: 20180529
  Transmission Date: 20180711
  Serious: Yes (Other)
  Sender: FDA-Public Use
  Company Number: None

PATIENT
  Age: 70 Year
  Sex: Female
  Weight: 63.5 kg

DRUGS (8)
  1. PYRIDOSTIGMINE BR 60MG TABLETS/GENERIC FOR MESTINON 60MG TABLETS [Suspect]
     Active Substance: PYRIDOSTIGMINE BROMIDE
     Indication: DIPLOPIA
     Dosage: ?          QUANTITY:30 DF DOSAGE FORM;?
     Route: 048
     Dates: start: 20180329, end: 20180407
  2. LEVOTHYROXINE. [Concomitant]
     Active Substance: LEVOTHYROXINE
  3. AMLODIPINE [Concomitant]
     Active Substance: AMLODIPINE BESYLATE
  4. OMEPRAZOLE DR [Concomitant]
     Active Substance: OMEPRAZOLE
  5. ATENOLOL. [Concomitant]
     Active Substance: ATENOLOL
  6. ADVIL [Concomitant]
     Active Substance: IBUPROFEN
  7. SIMVASTATIN. [Concomitant]
     Active Substance: SIMVASTATIN
  8. GARCINIA CAMBOGIA [Concomitant]
     Active Substance: HERBALS\GARCINIA CAMBOGIA FRUIT

REACTIONS (1)
  - Facial paralysis [None]

NARRATIVE: CASE EVENT DATE: 20180406
